FAERS Safety Report 9084277 (Version 4)
Quarter: 2013Q2

REPORT INFORMATION
  Report Type: Spontaneous
  Country: US (occurrence: US)
  Receive Date: 20130131
  Receipt Date: 20130409
  Transmission Date: 20140414
  Serious: Yes (Hospitalization)
  Sender: FDA-Public Use
  Company Number: US-PFIZER INC-2013033547

PATIENT
  Age: 90 Year
  Sex: Female
  Weight: 53.52 kg

DRUGS (4)
  1. NORVASC [Suspect]
     Indication: HYPERTENSION
     Dosage: 5 MG, 1X/DAY
  2. NORVASC [Suspect]
     Indication: CARDIAC DISORDER
  3. ACCUPRIL [Suspect]
     Indication: CARDIAC DISORDER
     Dosage: 40 MG, 1X/DAY
     Dates: end: 201303
  4. METOPROLOL TARTRATE [Concomitant]
     Indication: BLOOD PRESSURE
     Dosage: 50 MG, 2X/DAY
     Dates: end: 201303

REACTIONS (5)
  - Atrial fibrillation [Recovering/Resolving]
  - Laryngitis [Unknown]
  - Nervousness [Unknown]
  - Memory impairment [Unknown]
  - Malaise [Unknown]
